FAERS Safety Report 5495767-8 (Version None)
Quarter: 2007Q4

REPORT INFORMATION
  Report Type: 
  Country: None (occurrence: None)
  Receive Date: 20071025
  Receipt Date: 20061127
  Transmission Date: 20080405
  Serious: No
  Sender: FDA-Public Use
  Company Number: A0624055A

PATIENT
  Age: 73 Year
  Sex: Female

DRUGS (5)
  1. ADVAIR DISKUS 100/50 [Suspect]
     Indication: CHRONIC OBSTRUCTIVE PULMONARY DISEASE
     Dosage: 1PUFF TWICE PER DAY
     Route: 055
     Dates: start: 20060407
  2. ZOLOFT [Concomitant]
     Dosage: 1TAB PER DAY
     Route: 048
  3. COUMADIN [Concomitant]
     Dosage: 1TAB PER DAY
     Route: 048
  4. LIPITOR [Concomitant]
     Dosage: 1TAB PER DAY
     Route: 048
  5. BETAPACE [Concomitant]
     Dosage: 1TAB TWICE PER DAY
     Route: 048

REACTIONS (3)
  - DRUG INEFFECTIVE [None]
  - DYSPNOEA [None]
  - PHARMACEUTICAL PRODUCT COMPLAINT [None]
